FAERS Safety Report 7210502-0 (Version None)
Quarter: 2011Q1

REPORT INFORMATION
  Report Type: 
  Country: None (occurrence: None)
  Receive Date: 20110105
  Receipt Date: 20101224
  Transmission Date: 20110831
  Serious: Yes (Life-Threatening, Hospitalization, Other)
  Sender: FDA-Public Use
  Company Number: FR-ELI_LILLY_AND_COMPANY-FR201012005998

PATIENT
  Sex: Male

DRUGS (4)
  1. OXYGEN [Concomitant]
     Dosage: 3 L/MIN
  2. OXYGEN [Concomitant]
     Dosage: 10 L/MIN
     Route: 065
  3. FORTEO [Suspect]
     Indication: BONE PAIN
     Dosage: 20 UG, WEEKLY (1/W)
     Route: 058
     Dates: start: 20101001, end: 20101101
  4. OXYGEN [Concomitant]
     Dosage: 1 L/MIN, UNK
     Route: 065

REACTIONS (6)
  - DYSPNOEA [None]
  - DRUG PRESCRIBING ERROR [None]
  - EMPHYSEMA [None]
  - OFF LABEL USE [None]
  - DRUG DOSE OMISSION [None]
  - PLEURAL EFFUSION [None]
